FAERS Safety Report 10140417 (Version 2)
Quarter: 2015Q1

REPORT INFORMATION
  Report Type: Other
  Country: US (occurrence: US)
  Receive Date: 20140429
  Receipt Date: 20150313
  Transmission Date: 20150720
  Serious: Yes (Hospitalization, Other)
  Sender: FDA-Public Use
  Company Number: US-GSKPPD-2014GSK038892

PATIENT
  Age: 67 Year
  Sex: Male
  Weight: 85.9 kg

DRUGS (10)
  1. ASPIRIN ENTERIC COATED [Concomitant]
     Active Substance: ASPIRIN
     Route: 048
  2. ATENOLOL. [Concomitant]
     Active Substance: ATENOLOL
     Dates: end: 201108
  3. ISOSORBIDE MONONITRATE SR [Concomitant]
     Route: 048
     Dates: start: 201108
  4. NITROGLYCERIN. [Concomitant]
     Active Substance: NITROGLYCERIN
     Route: 060
     Dates: start: 201108
  5. FUROSEMIDE. [Concomitant]
     Active Substance: FUROSEMIDE
     Route: 048
  6. CLOPIDOGREL [Concomitant]
     Active Substance: CLOPIDOGREL BISULFATE
     Route: 048
  7. CLOPIDOGREL [Concomitant]
     Active Substance: CLOPIDOGREL BISULFATE
     Dosage: TREATMENT MEDICATION
     Dates: start: 201108, end: 201108
  8. AVANDIA [Suspect]
     Active Substance: ROSIGLITAZONE MALEATE
     Indication: DIABETES MELLITUS
     Dosage: DATES OF AVANDIA USE COULD NOT BE CONFIRMED
     Route: 048
  9. CARVEDILOL. [Concomitant]
     Active Substance: CARVEDILOL
     Route: 048
     Dates: start: 201108
  10. LISINOPRIL. [Concomitant]
     Active Substance: LISINOPRIL
     Route: 048

REACTIONS (2)
  - Coronary artery disease [Recovered/Resolved]
  - Cardiac failure congestive [Unknown]

NARRATIVE: CASE EVENT DATE: 20110825
